FAERS Safety Report 13775214 (Version 1)
Quarter: 2017Q3

REPORT INFORMATION
  Report Type: Spontaneous
  Country: None (occurrence: US)
  Receive Date: 20170720
  Receipt Date: 20170720
  Transmission Date: 20171127
  Serious: No
  Sender: FDA-Public Use
  Company Number: None

PATIENT
  Age: 53 Year
  Sex: Female

DRUGS (1)
  1. AVONEX [Suspect]
     Active Substance: INTERFERON BETA-1A
     Indication: MULTIPLE SCLEROSIS
     Dosage: 30MCG/0.5ML WEEKLY IM
     Route: 030
     Dates: start: 20170228, end: 20170618

REACTIONS (2)
  - Therapy cessation [None]
  - Emotional disorder [None]

NARRATIVE: CASE EVENT DATE: 20170718
